FAERS Safety Report 21699877 (Version 7)
Quarter: 2023Q2

REPORT INFORMATION
  Report Type: Report from Study
  Country: US (occurrence: US)
  Receive Date: 20221208
  Receipt Date: 20230610
  Transmission Date: 20230722
  Serious: Yes (Other)
  Sender: FDA-Public Use
  Company Number: US-002147023-NVSC2022US284330

PATIENT
  Age: 50 Year
  Sex: Female

DRUGS (3)
  1. COSENTYX [Suspect]
     Active Substance: SECUKINUMAB
     Indication: Psoriatic arthropathy
     Dosage: 300 MG, QW
     Route: 058
  2. COSENTYX [Suspect]
     Active Substance: SECUKINUMAB
     Indication: Psoriasis
     Dosage: 300 MG, QMO
     Route: 058
  3. COSENTYX [Suspect]
     Active Substance: SECUKINUMAB
     Dosage: 300 MG, QMO
     Route: 058

REACTIONS (12)
  - Deafness unilateral [Recovering/Resolving]
  - Deafness neurosensory [Unknown]
  - Diabetes mellitus [Unknown]
  - COVID-19 [Recovering/Resolving]
  - Pyrexia [Recovering/Resolving]
  - Dysuria [Unknown]
  - Vulvovaginal dryness [Unknown]
  - Abnormal menstrual clots [Unknown]
  - Vulvovaginal pruritus [Unknown]
  - Hot flush [Unknown]
  - Vertigo [Unknown]
  - Hypertension [Unknown]

NARRATIVE: CASE EVENT DATE: 20230513
